FAERS Safety Report 17938111 (Version 1)
Quarter: 2020Q2

REPORT INFORMATION
  Report Type: Spontaneous
  Country: DE (occurrence: DE)
  Receive Date: 20200624
  Receipt Date: 20200624
  Transmission Date: 20200714
  Serious: Yes (Hospitalization, Other)
  Sender: FDA-Public Use
  Company Number: DE-MYLANLABS-2020M1057648

PATIENT
  Age: 91 Year
  Sex: Male

DRUGS (15)
  1. ATORVASTATIN [Concomitant]
     Active Substance: ATORVASTATIN
     Dosage: 40 MG, 0-0-1-0
     Dates: end: 20200204
  2. FENTANYL. [Concomitant]
     Active Substance: FENTANYL
     Dosage: 25 ?G/H JEDEN 3. TAG
     Dates: end: 20200204
  3. NOVOMIX [Concomitant]
     Active Substance: INSULIN ASPART
     Dosage: 90|210 IE, 15-0-15-0
     Route: 058
     Dates: end: 20200204
  4. TORASEMIDE [Suspect]
     Active Substance: TORSEMIDE
     Indication: PRODUCT USED FOR UNKNOWN INDICATION
     Dosage: 10 MG, 1-0-0-0
     Dates: end: 20200204
  5. METOPROLOL. [Concomitant]
     Active Substance: METOPROLOL
     Dosage: 47.5 MG, 1-0-1-0
     Dates: end: 20200204
  6. KALIUM                             /00031401/ [Concomitant]
     Active Substance: POTASSIUM CHLORIDE
     Dosage: EVERY 2 DAYS 600 MG/JEDEN 2. TAG, 1-0-0-0
     Dates: end: 20200204
  7. CANDESARTAN. [Concomitant]
     Active Substance: CANDESARTAN
     Dosage: 16 MG, 1-0-0-0
     Dates: end: 20200204
  8. XIPAMIDE [Suspect]
     Active Substance: XIPAMIDE
     Indication: PRODUCT USED FOR UNKNOWN INDICATION
     Dosage: 5 MG, BEDARF
     Dates: end: 20200204
  9. BIFITERAL [Concomitant]
     Active Substance: LACTULOSE
     Dosage: BEDARF
     Dates: end: 20200204
  10. DEKRISTOL [Concomitant]
     Active Substance: CHOLECALCIFEROL
     Dosage: EVERY 2 DAYS 1000 IE/JEDEN 2. TAG, 1-0-0-0
     Dates: end: 20200204
  11. APIXABAN [Suspect]
     Active Substance: APIXABAN
     Indication: PRODUCT USED FOR UNKNOWN INDICATION
     Dosage: 2.5 MG, 1-0-1-0
     Dates: end: 20200204
  12. TILIDIN N [Concomitant]
     Active Substance: NALOXONE HYDROCHLORIDE\TILIDINE HYDROCHLORIDE
     Dosage: 4|50 MG, 1-0-1-0
     Dates: end: 20200204
  13. METAMIZOL                          /06276701/ [Concomitant]
     Active Substance: METAMIZOLE
     Dosage: 30 BEI BEDARF, TABLETTEN
     Dates: end: 20200204
  14. PANTOPRAZOL                        /01263201/ [Concomitant]
     Active Substance: PANTOPRAZOLE
     Dosage: 40 MG, 1-0-1-0
     Dates: end: 20200204
  15. LERCANIDIPINE [Concomitant]
     Active Substance: LERCANIDIPINE
     Dosage: 20 MG, 1-0-1-0
     Dates: end: 20200204

REACTIONS (7)
  - Haematemesis [Unknown]
  - Asthenia [Unknown]
  - Nausea [Unknown]
  - Dehydration [Unknown]
  - General physical health deterioration [Unknown]
  - Vomiting [Unknown]
  - Fatigue [Unknown]

NARRATIVE: CASE EVENT DATE: 20200128
